FAERS Safety Report 11595851 (Version 1)
Quarter: 2015Q4

REPORT INFORMATION
  Report Type: Spontaneous
  Country: US (occurrence: None)
  Receive Date: 20151005
  Receipt Date: 20151005
  Transmission Date: 20160304
  Serious: Yes (Other)
  Sender: FDA-Public Use
  Company Number: None

PATIENT
  Age: 73 Year
  Sex: Female

DRUGS (1)
  1. IBRANCE [Suspect]
     Active Substance: PALBOCICLIB
     Indication: BREAST CANCER
     Route: 048
     Dates: start: 20150917

REACTIONS (6)
  - Skin lesion [None]
  - Epistaxis [None]
  - Pharyngeal haemorrhage [None]
  - Asthenia [None]
  - Dizziness [None]
  - Rectal haemorrhage [None]

NARRATIVE: CASE EVENT DATE: 20150920
